FAERS Safety Report 6494509-7 (Version None)
Quarter: 2009Q4

REPORT INFORMATION
  Report Type: 
  Country: None (occurrence: None)
  Receive Date: 20091214
  Receipt Date: 20090226
  Transmission Date: 20100525
  Serious: No
  Sender: FDA-Public Use
  Company Number: US-BRISTOL-MYERS SQUIBB COMPANY-14521934

PATIENT
  Age: 13 Year
  Sex: Male

DRUGS (4)
  1. ABILIFY [Suspect]
     Dosage: 10 MG FOR 1 YEAR; REDUCED TO 5MG;
  2. LEXAPRO [Concomitant]
  3. STRATTERA [Concomitant]
  4. DAYTRANA [Concomitant]

REACTIONS (1)
  - TARDIVE DYSKINESIA [None]
